FAERS Safety Report 6235653-9 (Version None)
Quarter: 2009Q2

REPORT INFORMATION
  Report Type: 
  Country: None (occurrence: None)
  Receive Date: 20090616
  Receipt Date: 20090608
  Transmission Date: 20091009
  Serious: Yes (Death, Congenital Anomaly)
  Sender: FDA-Public Use
  Company Number: 230799J08USA

PATIENT
  Sex: Male
  Weight: 2.7669 kg

DRUGS (8)
  1. REBIF [Suspect]
     Indication: MULTIPLE SCLEROSIS
     Dosage: TRANSPLACENTAL
     Route: 064
     Dates: end: 20070526
  2. NEURONTIN [Suspect]
     Indication: MULTIPLE SCLEROSIS
     Dosage: TRANSPLACENTAL
     Route: 064
     Dates: end: 20070526
  3. NEURONTIN [Suspect]
     Indication: PAIN
     Dosage: TRANSPLACENTAL
     Route: 064
     Dates: end: 20070526
  4. DITROPAN [Suspect]
     Indication: INCONTINENCE
     Dosage: TRANSPLACENTAL
     Route: 064
     Dates: end: 20070526
  5. DITROPAN [Suspect]
     Indication: MULTIPLE SCLEROSIS
     Dosage: TRANSPLACENTAL
     Route: 064
     Dates: end: 20070526
  6. PROVIGIL [Suspect]
     Indication: FATIGUE
     Dosage: TRANSPLACENTAL
     Route: 064
     Dates: end: 20070526
  7. CRESTOR [Suspect]
     Indication: BLOOD CHOLESTEROL INCREASED
     Dosage: TRANSPLACENTAL
     Route: 064
     Dates: end: 20070526
  8. GLUCOVANCE [Suspect]
     Indication: DIABETES MELLITUS
     Dosage: TRANSPLACENTAL
     Route: 064
     Dates: end: 20070526

REACTIONS (15)
  - CONGENITAL ANOMALY [None]
  - CONGENITAL MUSCULOSKELETAL ANOMALY [None]
  - CYANOSIS NEONATAL [None]
  - DEATH NEONATAL [None]
  - DIABETIC FOETOPATHY [None]
  - DYSPLASIA [None]
  - FOETAL HYPOKINESIA [None]
  - LIMB REDUCTION DEFECT [None]
  - MATERNAL DRUGS AFFECTING FOETUS [None]
  - PREMATURE BABY [None]
  - PULMONARY HYPOPLASIA [None]
  - SPINE MALFORMATION [None]
  - TALIPES [None]
  - ULTRASOUND ANTENATAL SCREEN ABNORMAL [None]
  - VACTERL SYNDROME [None]
